FAERS Safety Report 14399942 (Version 2)
Quarter: 2018Q1

REPORT INFORMATION
  Report Type: Spontaneous
  Country: US (occurrence: US)
  Receive Date: 20180117
  Receipt Date: 20180220
  Transmission Date: 20180509
  Serious: Yes (Hospitalization)
  Sender: FDA-Public Use
  Company Number: US-JNJFOC-20171235127

PATIENT
  Age: 58 Year
  Sex: Female

DRUGS (9)
  1. XARELTO [Suspect]
     Active Substance: RIVAROXABAN
     Indication: THROMBOSIS PROPHYLAXIS
     Route: 048
     Dates: start: 20160131, end: 20160215
  2. XARELTO [Suspect]
     Active Substance: RIVAROXABAN
     Indication: KNEE ARTHROPLASTY
     Route: 048
     Dates: start: 20160131, end: 20160215
  3. XARELTO [Suspect]
     Active Substance: RIVAROXABAN
     Indication: THROMBOSIS PROPHYLAXIS
     Dosage: 10 MG DAILY FOR PROPHYLAXIS OF DEEP VEIN THROMBOSIS FOLLOWING??KNEE REPLACEMENT SURGERY
     Route: 048
     Dates: start: 20160213, end: 20160214
  4. XARELTO [Suspect]
     Active Substance: RIVAROXABAN
     Indication: THROMBOSIS PROPHYLAXIS
     Route: 048
     Dates: start: 201602, end: 20160215
  5. XARELTO [Suspect]
     Active Substance: RIVAROXABAN
     Indication: KNEE ARTHROPLASTY
     Route: 048
     Dates: start: 201602, end: 20160215
  6. XARELTO [Suspect]
     Active Substance: RIVAROXABAN
     Indication: DEEP VEIN THROMBOSIS
     Route: 048
     Dates: start: 201602, end: 20160215
  7. XARELTO [Suspect]
     Active Substance: RIVAROXABAN
     Indication: DEEP VEIN THROMBOSIS
     Route: 048
     Dates: start: 20160131, end: 20160215
  8. XARELTO [Suspect]
     Active Substance: RIVAROXABAN
     Indication: DEEP VEIN THROMBOSIS
     Dosage: 10 MG DAILY FOR PROPHYLAXIS OF DEEP VEIN THROMBOSIS FOLLOWING??KNEE REPLACEMENT SURGERY
     Route: 048
     Dates: start: 20160213, end: 20160214
  9. XARELTO [Suspect]
     Active Substance: RIVAROXABAN
     Indication: KNEE ARTHROPLASTY
     Dosage: 10 MG DAILY FOR PROPHYLAXIS OF DEEP VEIN THROMBOSIS FOLLOWING??KNEE REPLACEMENT SURGERY
     Route: 048
     Dates: start: 20160213, end: 20160214

REACTIONS (5)
  - Acute respiratory failure [Recovering/Resolving]
  - Haemorrhagic transformation stroke [Recovering/Resolving]
  - Encephalopathy [Recovering/Resolving]
  - Brain oedema [Recovering/Resolving]
  - Haemorrhage intracranial [Recovering/Resolving]

NARRATIVE: CASE EVENT DATE: 20160214
